FAERS Safety Report 11131109 (Version 7)
Quarter: 2015Q4

REPORT INFORMATION
  Report Type: Spontaneous
  Country: JP (occurrence: JP)
  Receive Date: 20150522
  Receipt Date: 20151207
  Transmission Date: 20160304
  Serious: Yes (Hospitalization, Other)
  Sender: FDA-Public Use
  Company Number: JP-ASTELLAS-2015JP010479AA

PATIENT
  Sex: Male
  Weight: 57 kg

DRUGS (9)
  1. PROGRAF [Suspect]
     Active Substance: TACROLIMUS\TACROLIMUS ANHYDROUS
     Dosage: 0.01 MG/KG, CONTINUOUS
     Route: 041
     Dates: start: 201505, end: 20150511
  2. INOVAN                             /00360702/ [Concomitant]
     Indication: PRODUCT USED FOR UNKNOWN INDICATION
     Dosage: 2 GAMMA, CONTINUOUS
     Route: 042
     Dates: start: 20150507, end: 20150508
  3. PROPOFOL. [Suspect]
     Active Substance: PROPOFOL
     Indication: PRODUCT USED FOR UNKNOWN INDICATION
     Dosage: 500 MG/H, CONTINUOUS
     Route: 041
     Dates: start: 20150505, end: 20150507
  4. PROGRAF [Suspect]
     Active Substance: TACROLIMUS\TACROLIMUS ANHYDROUS
     Indication: PROPHYLAXIS AGAINST TRANSPLANT REJECTION
     Route: 041
     Dates: start: 20150505, end: 201505
  5. FAMOTIDINE. [Concomitant]
     Active Substance: FAMOTIDINE
     Indication: PRODUCT USED FOR UNKNOWN INDICATION
     Route: 042
     Dates: start: 20150505, end: 20150507
  6. BASILIXIMAB [Concomitant]
     Active Substance: BASILIXIMAB
     Indication: PRODUCT USED FOR UNKNOWN INDICATION
     Dosage: UNK UNK, UNKNOWN FREQ.
     Route: 065
  7. HANP [Concomitant]
     Active Substance: CARPERITIDE
     Indication: PRODUCT USED FOR UNKNOWN INDICATION
     Dosage: 0.15 GAMMA, CONTINUOUS
     Route: 041
     Dates: start: 20150507
  8. PENTCILLIN [Concomitant]
     Active Substance: PIPERACILLIN SODIUM
     Indication: PRODUCT USED FOR UNKNOWN INDICATION
     Route: 042
     Dates: start: 20150505, end: 20150507
  9. PREDONINE [Concomitant]
     Active Substance: PREDNISOLONE\PREDNISOLONE ACETATE\PREDNISOLONE SODIUM SUCCINATE
     Indication: PRODUCT USED FOR UNKNOWN INDICATION
     Route: 042
     Dates: start: 20150507

REACTIONS (1)
  - Rhabdomyolysis [Recovering/Resolving]
